FAERS Safety Report 16855286 (Version 1)
Quarter: 2019Q3

REPORT INFORMATION
  Report Type: Spontaneous
  Country: US (occurrence: US)
  Receive Date: 20190926
  Receipt Date: 20190926
  Transmission Date: 20191005
  Serious: No
  Sender: FDA-Public Use
  Company Number: US-LEXICON PHARMACEUTICALS, INC-19-1606-00891

PATIENT
  Sex: Female

DRUGS (3)
  1. TELOTRISTAT ETHYL [Suspect]
     Active Substance: TELOTRISTAT ETHYL
     Indication: CARCINOID SYNDROME
     Route: 048
     Dates: start: 20190314
  2. LANREOTIDE [Concomitant]
     Active Substance: LANREOTIDE
  3. METOPROLOL. [Concomitant]
     Active Substance: METOPROLOL

REACTIONS (10)
  - Arthralgia [Not Recovered/Not Resolved]
  - Eructation [Not Recovered/Not Resolved]
  - Hyperventilation [Recovered/Resolved]
  - Constipation [Not Recovered/Not Resolved]
  - Dyspnoea [Recovered/Resolved]
  - Dizziness [Recovered/Resolved]
  - Flatulence [Not Recovered/Not Resolved]
  - Flushing [Not Recovered/Not Resolved]
  - Gallbladder disorder [Unknown]
  - Abdominal discomfort [Not Recovered/Not Resolved]
